FAERS Safety Report 5806395-6 (Version None)
Quarter: 2008Q3

REPORT INFORMATION
  Report Type: 
  Country: None (occurrence: None)
  Receive Date: 20080708
  Receipt Date: 20080627
  Transmission Date: 20090109
  Serious: Yes (Other)
  Sender: FDA-Public Use
  Company Number: 19623

PATIENT
  Age: 62 Year

DRUGS (9)
  1. VINCRISTINE [Suspect]
     Indication: B PRECURSOR TYPE ACUTE LEUKAEMIA
     Dates: start: 20060501, end: 20060901
  2. VINCRISTINE [Suspect]
     Indication: B PRECURSOR TYPE ACUTE LEUKAEMIA
     Dates: start: 20060901
  3. CYCLOPHOSPHAMIDE [Suspect]
     Indication: B PRECURSOR TYPE ACUTE LEUKAEMIA
     Dates: start: 20060501, end: 20060901
  4. DOXORUBICIN HCL [Suspect]
     Indication: B PRECURSOR TYPE ACUTE LEUKAEMIA
     Dates: start: 20060501, end: 20060901
  5. DEXAMETHASONE [Suspect]
     Indication: B PRECURSOR TYPE ACUTE LEUKAEMIA
     Dates: start: 20060501, end: 20060901
  6. IMATINIB MESYLATE [Suspect]
     Indication: B PRECURSOR TYPE ACUTE LEUKAEMIA
     Dosage: 600 MG DAILY PO
     Route: 048
     Dates: start: 20060501, end: 20060901
  7. IMATINIB MESYLATE [Suspect]
     Indication: B PRECURSOR TYPE ACUTE LEUKAEMIA
     Dosage: 800 MG DAILY PO
     Route: 048
     Dates: start: 20060901
  8. IMATINIB MESYLATE [Suspect]
     Dosage: 600 MG DAILY PO
     Route: 048
     Dates: start: 20070301
  9. PREDNISONE TAB [Suspect]
     Dates: start: 20060901

REACTIONS (5)
  - FLUID RETENTION [None]
  - LEUKAEMIC INFILTRATION BRAIN [None]
  - MYELODYSPLASTIC SYNDROME [None]
  - PERFORMANCE STATUS DECREASED [None]
  - STEM CELL TRANSPLANT [None]
